FAERS Safety Report 6504234-1 (Version None)
Quarter: 2009Q4

REPORT INFORMATION
  Report Type: 
  Country: None (occurrence: None)
  Receive Date: 20091215
  Receipt Date: 20091208
  Transmission Date: 20100525
  Serious: Yes (Other)
  Sender: FDA-Public Use
  Company Number: TCI2009A04601

PATIENT
  Age: 78 Year
  Sex: Female

DRUGS (10)
  1. LANSAP 800 (LANSOPRAZOLE,CLARITHROMYCIN,AMOXICILLIN) [Suspect]
     Indication: HELICOBACTER INFECTION
     Dosage: 1 CARD (0.5 CAD,2 IN 1 D) PER ORAL
     Route: 048
     Dates: start: 20090812, end: 20090817
  2. GLYBURIDE [Concomitant]
  3. GLYCORAN (METFORMIN HYDROCHLORIDE) [Concomitant]
  4. GLUCOBAY [Concomitant]
  5. LIPITOR [Concomitant]
  6. LANIRAPID (METILDIGOXIN) [Concomitant]
  7. ADALAT CC [Concomitant]
  8. DIOVAN [Concomitant]
  9. MAGMITT          (MAGNESIUM OXIDE) [Concomitant]
  10. METHYCOBAL          (MECOBALAMIN) [Concomitant]

REACTIONS (3)
  - GENERALISED OEDEMA [None]
  - PLEURAL EFFUSION [None]
  - WEIGHT INCREASED [None]
